FAERS Safety Report 13493380 (Version 4)
Quarter: 2017Q3

REPORT INFORMATION
  Report Type: Report from Study
  Country: US (occurrence: US)
  Receive Date: 20170427
  Receipt Date: 20170824
  Transmission Date: 20171127
  Serious: Yes (Hospitalization)
  Sender: FDA-Public Use
  Company Number: US-ACTELION-A-US2017-153112

PATIENT
  Age: 5 Year
  Sex: Male
  Weight: 22.22 kg

DRUGS (2)
  1. TRACLEER [Suspect]
     Active Substance: BOSENTAN
     Indication: PULMONARY ARTERIAL HYPERTENSION
     Dosage: 62.5 MG, BID
     Route: 048
     Dates: start: 20170122
  2. REVATIO [Concomitant]
     Active Substance: SILDENAFIL CITRATE
     Dosage: 20 MG, TID
     Route: 048
     Dates: start: 20160924

REACTIONS (7)
  - Pyrexia [Recovered/Resolved]
  - Respiratory distress [Recovering/Resolving]
  - Oxygen therapy [Recovering/Resolving]
  - Dyspnoea [Recovering/Resolving]
  - Tracheostomy [Recovered/Resolved]
  - Human metapneumovirus test positive [Recovered/Resolved]
  - Cough [Recovered/Resolved]

NARRATIVE: CASE EVENT DATE: 20170412
